FAERS Safety Report 16123710 (Version 1)
Quarter: 2019Q1

REPORT INFORMATION
  Report Type: Report from Study
  Country: US (occurrence: US)
  Receive Date: 20190327
  Receipt Date: 20190327
  Transmission Date: 20190418
  Serious: Yes (Other)
  Sender: FDA-Public Use
  Company Number: US-JAZZ-2018-US-015289

PATIENT
  Age: 65 Year
  Sex: Female

DRUGS (39)
  1. XYREM [Suspect]
     Active Substance: SODIUM OXYBATE
     Indication: NARCOLEPSY
     Dosage: 2.25 G, BID
     Route: 048
     Dates: start: 201303, end: 201304
  2. PERCOCET [Concomitant]
     Active Substance: ACETAMINOPHEN\OXYCODONE HYDROCHLORIDE
  3. PRAMIPEXOLE. [Concomitant]
     Active Substance: PRAMIPEXOLE
  4. VIIBRYD [Concomitant]
     Active Substance: VILAZODONE HYDROCHLORIDE
  5. HYDROCHLOROTHIAZIDE. [Concomitant]
     Active Substance: HYDROCHLOROTHIAZIDE
  6. CEFALEXIN [Concomitant]
     Active Substance: CEPHALEXIN
  7. CLOBETASOL [Concomitant]
     Active Substance: CLOBETASOL
  8. IBUPROFEN. [Concomitant]
     Active Substance: IBUPROFEN
  9. LIDOCAINE. [Concomitant]
     Active Substance: LIDOCAINE
  10. MOBIC [Concomitant]
     Active Substance: MELOXICAM
  11. VALTREX [Concomitant]
     Active Substance: VALACYCLOVIR HYDROCHLORIDE
  12. HYDROCODONE BITARTRATE AND ACETAMINOPHEN [Concomitant]
     Active Substance: ACETAMINOPHEN\HYDROCODONE BITARTRATE
  13. CLONAZEPAM. [Concomitant]
     Active Substance: CLONAZEPAM
  14. FERREX [Concomitant]
     Active Substance: FERRIC POLYSACCHARIDE COMPLEX
  15. XYREM [Suspect]
     Active Substance: SODIUM OXYBATE
     Dosage: 3.75 G, BID
     Route: 048
     Dates: start: 201604, end: 2018
  16. CALCITRIOL. [Concomitant]
     Active Substance: CALCITRIOL
  17. PRISTIQ EXTENDED-RELEASE [Concomitant]
     Active Substance: DESVENLAFAXINE SUCCINATE
  18. PROGESTERONE. [Concomitant]
     Active Substance: PROGESTERONE
  19. TRIAMCINOLONE [Concomitant]
     Active Substance: TRIAMCINOLONE
  20. XYREM [Suspect]
     Active Substance: SODIUM OXYBATE
     Dosage: DOSE ADJUSTMENT
     Route: 048
     Dates: start: 201304, end: 201604
  21. LOSARTAN POTASSIUM. [Concomitant]
     Active Substance: LOSARTAN POTASSIUM
  22. ALENDRONATE SODIUM. [Concomitant]
     Active Substance: ALENDRONATE SODIUM
  23. EVISTA [Concomitant]
     Active Substance: RALOXIFENE HYDROCHLORIDE
  24. METOPROLOL. [Concomitant]
     Active Substance: METOPROLOL
  25. NUVIGIL [Concomitant]
     Active Substance: ARMODAFINIL
  26. ADDERALL [Concomitant]
     Active Substance: AMPHETAMINE ASPARTATE\AMPHETAMINE SULFATE\DEXTROAMPHETAMINE SACCHARATE\DEXTROAMPHETAMINE SULFATE
  27. DEXTROAMPHETAMINE SULFATE. [Concomitant]
     Active Substance: DEXTROAMPHETAMINE SULFATE
  28. ESTRACE [Concomitant]
     Active Substance: ESTRADIOL
  29. XANAX [Concomitant]
     Active Substance: ALPRAZOLAM
  30. TESTOSTERONE CYPIONATE. [Concomitant]
     Active Substance: TESTOSTERONE CYPIONATE
  31. EPIPEN [Concomitant]
     Active Substance: EPINEPHRINE
  32. LYRICA [Concomitant]
     Active Substance: PREGABALIN
  33. ALPRAZOLAM. [Concomitant]
     Active Substance: ALPRAZOLAM
  34. SUMATRIPTAN. [Concomitant]
     Active Substance: SUMATRIPTAN
  35. POTASSIUM CL [Concomitant]
     Active Substance: POTASSIUM CHLORIDE
  36. IRON [Concomitant]
     Active Substance: IRON
  37. KETOCONAZOLE. [Concomitant]
     Active Substance: KETOCONAZOLE
  38. SYNTHROID [Concomitant]
     Active Substance: LEVOTHYROXINE SODIUM
  39. KEFLEX-C [Concomitant]
     Active Substance: CEPHALEXIN

REACTIONS (1)
  - Scoliosis [Not Recovered/Not Resolved]

NARRATIVE: CASE EVENT DATE: 201809
